FAERS Safety Report 12470967 (Version 1)
Quarter: 2016Q2

REPORT INFORMATION
  Report Type: Spontaneous
  Country: US (occurrence: US)
  Receive Date: 20160616
  Receipt Date: 20160616
  Transmission Date: 20160815
  Serious: No
  Sender: FDA-Public Use
  Company Number: US-BIOGEN-2016BI00248488

PATIENT
  Sex: Female

DRUGS (4)
  1. TYSABRI [Suspect]
     Active Substance: NATALIZUMAB
     Indication: MULTIPLE SCLEROSIS
     Dates: start: 20070417, end: 20081121
  2. TYSABRI [Suspect]
     Active Substance: NATALIZUMAB
     Dates: start: 20101213, end: 20110615
  3. TYSABRI [Suspect]
     Active Substance: NATALIZUMAB
     Dates: start: 20091207, end: 20100119
  4. TYSABRI [Suspect]
     Active Substance: NATALIZUMAB
     Dates: start: 20110214

REACTIONS (1)
  - Gait disturbance [Not Recovered/Not Resolved]
